FAERS Safety Report 4607644-2 (Version None)
Quarter: 2005Q1

REPORT INFORMATION
  Report Type: 
  Country: None (occurrence: None)
  Receive Date: 20050314
  Receipt Date: 19980407
  Transmission Date: 20050727
  Serious: Yes (Hospitalization)
  Sender: FDA-Public Use
  Company Number: B038095

PATIENT
  Age: 73 Year
  Sex: Male

DRUGS (5)
  1. CORGARD [Suspect]
     Indication: ANGINA PECTORIS
     Route: 048
     Dates: start: 19971010, end: 19971010
  2. OMEPRAZOLE [Concomitant]
     Route: 048
  3. ZESTRIL [Concomitant]
     Indication: MYOCARDIAL INFARCTION
     Route: 048
  4. ASPEGIC 325 [Concomitant]
  5. CORDARONE [Concomitant]
     Dates: end: 19971006

REACTIONS (1)
  - ANGIONEUROTIC OEDEMA [None]
